FAERS Safety Report 21097373 (Version 1)
Quarter: 2022Q3

REPORT INFORMATION
  Report Type: Spontaneous
  Country: IN (occurrence: IN)
  Receive Date: 20220719
  Receipt Date: 20220719
  Transmission Date: 20221026
  Serious: Yes (Other)
  Sender: FDA-Public Use
  Company Number: IN-LUPIN PHARMACEUTICALS INC.-2022-09436

PATIENT
  Age: 3 Year
  Sex: Female

DRUGS (11)
  1. PYRAZINAMIDE [Suspect]
     Active Substance: PYRAZINAMIDE
     Indication: Tuberculosis
     Dosage: UNK
     Route: 065
  2. PYRAZINAMIDE [Suspect]
     Active Substance: PYRAZINAMIDE
     Dosage: UNK
     Route: 065
  3. RIFAMPIN [Suspect]
     Active Substance: RIFAMPIN
     Indication: Tuberculosis
     Dosage: UNK
     Route: 065
  4. RIFAMPIN [Suspect]
     Active Substance: RIFAMPIN
     Dosage: UNK
     Route: 065
  5. ETHAMBUTOL [Suspect]
     Active Substance: ETHAMBUTOL HYDROCHLORIDE
     Indication: Tuberculosis
     Dosage: UNK
     Route: 065
  6. PREDNISOLONE [Suspect]
     Active Substance: PREDNISOLONE
     Indication: Multisystem inflammatory syndrome in children
     Dosage: UNK
     Route: 048
  7. PREDNISOLONE [Suspect]
     Active Substance: PREDNISOLONE
     Dosage: UNK
     Route: 048
  8. METHYLPREDNISOLONE [Suspect]
     Active Substance: METHYLPREDNISOLONE
     Indication: Multisystem inflammatory syndrome in children
     Dosage: UNK
     Route: 065
  9. ISONIAZID [Suspect]
     Active Substance: ISONIAZID
     Indication: Tuberculosis
     Dosage: UNK
     Route: 065
  10. ISONIAZID [Suspect]
     Active Substance: ISONIAZID
     Dosage: UNK
     Route: 065
  11. HUMAN IMMUNOGLOBULIN G [Concomitant]
     Active Substance: HUMAN IMMUNOGLOBULIN G
     Indication: Multisystem inflammatory syndrome in children
     Dosage: UNK
     Route: 042

REACTIONS (3)
  - Hypertension [Recovered/Resolved]
  - Hyperbilirubinaemia [Recovering/Resolving]
  - Hypertransaminasaemia [Recovering/Resolving]
